FAERS Safety Report 14772365 (Version 2)
Quarter: 2018Q2

REPORT INFORMATION
  Report Type: Report from Study
  Country: US (occurrence: US)
  Receive Date: 20180418
  Receipt Date: 20180504
  Transmission Date: 20180711
  Serious: Yes (Hospitalization, Other)
  Sender: FDA-Public Use
  Company Number: US-BRISTOL-MYERS SQUIBB COMPANY-BMS-2018-034021

PATIENT
  Age: 67 Year
  Sex: Male
  Weight: 117.2 kg

DRUGS (2)
  1. NIVOLUMAB [Suspect]
     Active Substance: NIVOLUMAB
     Indication: THYROID CANCER
     Dosage: 240 MG, UNK
     Route: 042
     Dates: start: 20180104, end: 20180215
  2. IPILIMUMAB [Suspect]
     Active Substance: IPILIMUMAB
     Indication: THYROID CANCER
     Dosage: 1 MG/KG, UNK
     Route: 042
     Dates: start: 20180104, end: 20180215

REACTIONS (4)
  - Dysphagia [Recovering/Resolving]
  - Pneumonia [Recovering/Resolving]
  - Aspiration [Recovering/Resolving]
  - Dyspnoea [Unknown]

NARRATIVE: CASE EVENT DATE: 20180324
